FAERS Safety Report 8622555 (Version 3)
Quarter: 2013Q4

REPORT INFORMATION
  Report Type: Report from Study
  Country: FR (occurrence: FR)
  Receive Date: 20120619
  Receipt Date: 20131206
  Transmission Date: 20140711
  Serious: Yes (Other)
  Sender: FDA-Public Use
  Company Number: FR-GLAXOSMITHKLINE-B0752153A

PATIENT
  Age: 60 Year
  Sex: Male
  Weight: 58 kg

DRUGS (5)
  1. PAZOPANIB [Suspect]
     Indication: NEOPLASM MALIGNANT
     Route: 048
     Dates: start: 20110824
  2. NICARDIPINE [Concomitant]
     Dosage: 60MG PER DAY
     Dates: start: 20110810
  3. BISOPROLOL [Concomitant]
     Dosage: 10MG PER DAY
     Dates: start: 20110810
  4. RAMIPRIL [Concomitant]
  5. FUROSEMIDE [Concomitant]

REACTIONS (1)
  - Blood thyroid stimulating hormone increased [Recovering/Resolving]
